FAERS Safety Report 8232524-3 (Version None)
Quarter: 2012Q1

REPORT INFORMATION
  Report Type: 
  Country: None (occurrence: None)
  Receive Date: 20120323
  Receipt Date: 20120315
  Transmission Date: 20120608
  Serious: Yes (Other)
  Sender: FDA-Public Use
  Company Number: JP-CELGENEUS-087-50794-12032058

PATIENT
  Sex: Female

DRUGS (3)
  1. NAVOBAN [Concomitant]
     Route: 065
     Dates: start: 20110324
  2. VIDAZA [Suspect]
     Dosage: 100 MILLIGRAM
     Route: 058
     Dates: start: 20110324, end: 20110324
  3. VIDAZA [Suspect]
     Dosage: 100 MILLIGRAM
     Route: 041
     Dates: start: 20110330

REACTIONS (1)
  - COLITIS ISCHAEMIC [None]
